FAERS Safety Report 8726478 (Version 2)
Quarter: 2012Q4

REPORT INFORMATION
  Report Type: 
  Country: JP (occurrence: JP)
  Receive Date: 20120816
  Receipt Date: 20120831
  Transmission Date: 20130627
  Serious: Yes (Hospitalization, Other)
  Sender: FDA-Public Use
  Company Number: JP-PFIZER INC-2012192671

PATIENT
  Age: 50 Year
  Sex: Female

DRUGS (3)
  1. LYRICA [Suspect]
     Route: 048
  2. HYPEN [Suspect]
     Route: 048
  3. LEVOTOMIN [Suspect]
     Route: 048

REACTIONS (8)
  - Overdose [Unknown]
  - Toxicity to various agents [Recovering/Resolving]
  - Altered state of consciousness [Recovering/Resolving]
  - Hallucination, visual [Recovering/Resolving]
  - Emotional disorder [Recovering/Resolving]
  - Blood pressure decreased [None]
  - Pulmonary oedema [None]
  - Ventricular hypokinesia [None]
